FAERS Safety Report 20590171 (Version 1)
Quarter: 2022Q1

REPORT INFORMATION
  Report Type: Spontaneous
  Country: US (occurrence: US)
  Receive Date: 20220314
  Receipt Date: 20220314
  Transmission Date: 20220423
  Serious: No
  Sender: FDA-Public Use
  Company Number: US-drreddys-SPO/USA/22/0147496

PATIENT
  Age: 22 Year

DRUGS (2)
  1. ZENATANE [Suspect]
     Active Substance: ISOTRETINOIN
     Indication: Product used for unknown indication
     Dosage: RMA ISSUE DATE:  23 AUGUST 2021 04:07:33 PM, 21 SEPTEMBER 2021 10:32:48 AM, 27 OCTOBER 2021 04:53:29
  2. ZENATANE [Suspect]
     Active Substance: ISOTRETINOIN
     Dosage: RMA ISSUE DATE: 19 JULY 2021 02:53:20 PM, 01 DECEMBER 2021 01:12:29 PM, 06 JANUARY 2022 04:52:17 PM

REACTIONS (1)
  - Treatment noncompliance [Unknown]
